FAERS Safety Report 10432133 (Version 1)
Quarter: 2014Q3

REPORT INFORMATION
  Report Type: Report from Study
  Country: JP (occurrence: JP)
  Receive Date: 20140905
  Receipt Date: 20140905
  Transmission Date: 20150326
  Serious: No
  Sender: FDA-Public Use
  Company Number: JP-BRISTOL-MYERS SQUIBB COMPANY-21351580

PATIENT
  Age: 80 Year
  Sex: Female
  Weight: 59 kg

DRUGS (6)
  1. ZETIA [Concomitant]
     Active Substance: EZETIMIBE
  2. ELIQUIS [Suspect]
     Active Substance: APIXABAN
     Indication: THROMBOSIS PROPHYLAXIS
     Dosage: LAST DOSE, INTER:10JUN2014?RESUMED AT THE SAME DOSE:14JUN14
     Route: 048
     Dates: start: 20140502
  3. MAINTATE [Concomitant]
     Active Substance: BISOPROLOL FUMARATE
  4. AIMIX [Concomitant]
     Active Substance: AMLODIPINE BESYLATE\IRBESARTAN
  5. ASPIRIN. [Concomitant]
     Active Substance: ASPIRIN
  6. CRESTOR [Concomitant]
     Active Substance: ROSUVASTATIN CALCIUM

REACTIONS (1)
  - Renal impairment [Unknown]
